FAERS Safety Report 21265021 (Version 1)
Quarter: 2022Q3

REPORT INFORMATION
  Report Type: Spontaneous
  Country: ES (occurrence: ES)
  Receive Date: 20220829
  Receipt Date: 20220829
  Transmission Date: 20221026
  Serious: Yes (Hospitalization)
  Sender: FDA-Public Use
  Company Number: None

PATIENT
  Age: 72 Year
  Sex: Female

DRUGS (4)
  1. HYDROCHLOROTHIAZIDE\LOSARTAN [Interacting]
     Active Substance: HYDROCHLOROTHIAZIDE\LOSARTAN
     Indication: Hypertension
     Dosage: 50 MILLIGRAM DAILY; DURATION 229 DAYS
     Dates: start: 20211008, end: 20220524
  2. FUROSEMIDE [Interacting]
     Active Substance: FUROSEMIDE
     Indication: Hypertension
     Dosage: 80 MILLIGRAM DAILY; FUROSEMIDA (1615A), DURATION 12 DAYS
     Dates: start: 20220513, end: 20220524
  3. SPIRONOLACTONE [Interacting]
     Active Substance: SPIRONOLACTONE
     Indication: Product used for unknown indication
     Dosage: 100 MILLIGRAM DAILY; ESPIRONOLACTONA (326A), DURATION 11 DAYS
     Dates: start: 20220513, end: 20220524
  4. AMIODARONE [Concomitant]
     Active Substance: AMIODARONE
     Indication: Product used for unknown indication
     Dosage: 100 MILLIGRAM DAILY; AMIODARONA (392A), DURATION 12 DAYS
     Dates: start: 20220513, end: 20220524

REACTIONS (4)
  - Acute kidney injury [Recovering/Resolving]
  - Hyponatraemia [Recovered/Resolved]
  - Hyperkalaemia [Recovered/Resolved]
  - Drug interaction [Unknown]

NARRATIVE: CASE EVENT DATE: 20220524
